FAERS Safety Report 8886267 (Version 2)
Quarter: 2012Q4

REPORT INFORMATION
  Report Type: 
  Country: JP (occurrence: JP)
  Receive Date: 20121105
  Receipt Date: 20121126
  Transmission Date: 20130627
  Serious: Yes (Hospitalization, Disabling)
  Sender: FDA-Public Use
  Company Number: JP-ASTELLAS-2012JP009826

PATIENT
  Age: 49 Year
  Sex: Male
  Weight: 83.5 kg

DRUGS (8)
  1. BETANIS [Suspect]
     Indication: URINARY INCONTINENCE
     Dosage: 50 mg, UID/QD
     Route: 048
     Dates: start: 20121002, end: 20121011
  2. PROMAC                             /01312301/ [Concomitant]
     Dosage: 75 mg, bid
     Route: 048
  3. OMEPRAZON [Concomitant]
     Dosage: 20 mg, UID/QD
     Route: 048
  4. LIVACT                             /00847901/ [Concomitant]
     Dosage: 4.15 g, tid
     Route: 048
  5. CONTOMIN [Concomitant]
     Dosage: 25 mg, bid
     Route: 048
  6. METGLUCO [Concomitant]
     Dosage: 250 mg, bid
     Route: 048
  7. AMOBAN [Concomitant]
     Dosage: 7.5 mg, prn
     Route: 048
  8. STAYBLA [Concomitant]
     Indication: URINARY INCONTINENCE
     Dosage: UNK
     Route: 048
     Dates: start: 20120911

REACTIONS (1)
  - Rhabdomyolysis [Recovered/Resolved]
